FAERS Safety Report 17011595 (Version 2)
Quarter: 2019Q4

REPORT INFORMATION
  Report Type: Spontaneous
  Country: US (occurrence: US)
  Receive Date: 20191108
  Receipt Date: 20191121
  Transmission Date: 20200122
  Serious: Yes (Other)
  Sender: FDA-Public Use
  Company Number: US-JNJFOC-20191100531

PATIENT
  Age: 7 Decade
  Sex: Male
  Weight: 111.23 kg

DRUGS (1)
  1. XARELTO [Suspect]
     Active Substance: RIVAROXABAN
     Indication: NECROSIS
     Route: 048
     Dates: start: 2014

REACTIONS (4)
  - Product quality issue [Unknown]
  - Arthropathy [Unknown]
  - Product use in unapproved indication [Unknown]
  - Off label use [Unknown]
